FAERS Safety Report 9201988 (Version 2)
Quarter: 2013Q2

REPORT INFORMATION
  Report Type: Spontaneous
  Country: US (occurrence: None)
  Receive Date: 20130328
  Receipt Date: 20130419
  Transmission Date: 20140414
  Serious: Yes (Hospitalization)
  Sender: FDA-Public Use
  Company Number: 2013AP003798

PATIENT
  Age: 83 Year
  Sex: Female
  Weight: 59.88 kg

DRUGS (12)
  1. AZITHROMYCIN [Suspect]
     Indication: PNEUMONIA
     Dates: start: 201301
  2. SPIRIVA [Suspect]
     Indication: CHRONIC OBSTRUCTIVE PULMONARY DISEASE
     Dates: start: 201212, end: 201212
  3. PREDNISONE [Suspect]
     Indication: PNEUMONIA
     Dates: start: 201301
  4. DIGOXIN [Concomitant]
  5. NITROGLYCERIN [Concomitant]
  6. HYDROCHLOORTHIAZIDE [Concomitant]
  7. ROSUVASTATIN CALCIUM [Concomitant]
  8. WARFARIN [Concomitant]
  9. ISOSORBIDE MONONITRATE [Concomitant]
  10. METOPROLOL TARTRATE [Concomitant]
  11. LEVOXYL [Concomitant]
  12. FLUTICASONE W/SALMETEROL [Concomitant]

REACTIONS (2)
  - Drug ineffective [None]
  - Pneumonia [None]
